FAERS Safety Report 12575314 (Version 2)
Quarter: 2017Q2

REPORT INFORMATION
  Report Type: Spontaneous
  Country: US (occurrence: US)
  Receive Date: 20160720
  Receipt Date: 20170623
  Transmission Date: 20170830
  Serious: No
  Sender: FDA-Public Use
  Company Number: US-ASTELLAS-2016US008970

PATIENT
  Sex: Female

DRUGS (2)
  1. VESICARE [Suspect]
     Active Substance: SOLIFENACIN SUCCINATE
     Indication: MICTURITION URGENCY
     Route: 048
     Dates: start: 2015
  2. VESICARE [Suspect]
     Active Substance: SOLIFENACIN SUCCINATE
     Dosage: BREAKS 10 MG TABLET AND TAKES 5MG IN AM AND 5 MG PM
     Route: 048
     Dates: start: 20160306

REACTIONS (4)
  - Drug effect incomplete [Unknown]
  - Wrong technique in product usage process [Unknown]
  - Nocturia [Not Recovered/Not Resolved]
  - Inappropriate schedule of drug administration [Unknown]
